FAERS Safety Report 11029475 (Version 1)
Quarter: 2015Q2

REPORT INFORMATION
  Report Type: Spontaneous
  Country: CA (occurrence: CA)
  Receive Date: 20150415
  Receipt Date: 20150415
  Transmission Date: 20150821
  Serious: Yes (Other)
  Sender: FDA-Public Use
  Company Number: CA-JNJFOC-20140705420

PATIENT

DRUGS (2)
  1. POLYSPORIN EYE/EAR [Suspect]
     Active Substance: GRAMICIDIN\POLYMYXIN B
     Indication: PRODUCT USED FOR UNKNOWN INDICATION
     Route: 065
  2. POLYSPORIN [Suspect]
     Active Substance: BACITRACIN ZINC\POLYMYXIN B SULFATE
     Indication: PRODUCT USED FOR UNKNOWN INDICATION
     Route: 047

REACTIONS (4)
  - Product quality issue [None]
  - Drug ineffective [Unknown]
  - Drug abuse [Unknown]
  - Pathogen resistance [Unknown]
